FAERS Safety Report 8888739 (Version 3)
Quarter: 2013Q1

REPORT INFORMATION
  Report Type: Spontaneous
  Country: BR (occurrence: BR)
  Receive Date: 20121106
  Receipt Date: 20130131
  Transmission Date: 20140127
  Serious: Yes (Death, Hospitalization)
  Sender: FDA-Public Use
  Company Number: BR-B.I. PHARMACEUTICALS,INC./RIDGEFIELD-2012-BR-01256BR

PATIENT
  Age: 80 Year
  Sex: Male

DRUGS (2)
  1. PRADAXA [Suspect]
     Indication: CEREBROVASCULAR ACCIDENT PROPHYLAXIS
     Dosage: 220 MG
     Route: 048
  2. PRADAXA [Suspect]
     Indication: ATRIAL FIBRILLATION

REACTIONS (1)
  - Peripheral artery thrombosis [Fatal]
